FAERS Safety Report 15193443 (Version 2)
Quarter: 2018Q3

REPORT INFORMATION
  Report Type: Spontaneous
  Country: JP (occurrence: JP)
  Receive Date: 20180725
  Receipt Date: 20180813
  Transmission Date: 20181010
  Serious: Yes (Death)
  Sender: FDA-Public Use
  Company Number: JP-EISAI MEDICAL RESEARCH-EC-2018-043152

PATIENT
  Age: 54 Year
  Sex: Male
  Weight: 56 kg

DRUGS (14)
  1. FENTOS [Concomitant]
     Active Substance: FENTANYL
     Indication: PRODUCT USED FOR UNKNOWN INDICATION
     Route: 062
  2. MAGMITT [Concomitant]
     Active Substance: MAGNESIUM OXIDE
     Indication: PRODUCT USED FOR UNKNOWN INDICATION
     Route: 048
  3. TALION [Concomitant]
     Active Substance: BEPOTASTINE
     Indication: PRODUCT USED FOR UNKNOWN INDICATION
     Route: 048
  4. OXINORM [Concomitant]
     Indication: PRODUCT USED FOR UNKNOWN INDICATION
     Route: 048
  5. LOXONIN [Concomitant]
     Active Substance: LOXOPROFEN SODIUM
     Indication: ABDOMINAL PAIN UPPER
     Route: 048
     Dates: start: 20180629
  6. ADALAT CC [Concomitant]
     Active Substance: NIFEDIPINE
     Route: 048
     Dates: start: 20180706
  7. LOPEMIN [Concomitant]
     Active Substance: LOPERAMIDE HYDROCHLORIDE
     Indication: PRODUCT USED FOR UNKNOWN INDICATION
     Route: 048
  8. OXYCONTIN TR [Concomitant]
     Indication: ABDOMINAL PAIN UPPER
     Route: 048
     Dates: start: 20180711
  9. MUCOSTA [Concomitant]
     Active Substance: REBAMIPIDE
     Indication: PRODUCT USED FOR UNKNOWN INDICATION
     Route: 048
  10. VERAPAMIL HCL [Concomitant]
     Active Substance: VERAPAMIL HYDROCHLORIDE
     Indication: PRODUCT USED FOR UNKNOWN INDICATION
     Route: 065
  11. PARIET [Concomitant]
     Active Substance: RABEPRAZOLE SODIUM
     Indication: PRODUCT USED FOR UNKNOWN INDICATION
     Route: 048
  12. LENVIMA [Suspect]
     Active Substance: LENVATINIB
     Indication: HEPATOCELLULAR CARCINOMA
     Route: 048
     Dates: start: 20180705, end: 20180714
  13. ADALAT CC [Concomitant]
     Active Substance: NIFEDIPINE
     Indication: PRODUCT USED FOR UNKNOWN INDICATION
     Route: 048
     Dates: start: 20180705, end: 20180705
  14. CALONAL [Concomitant]
     Active Substance: ACETAMINOPHEN
     Indication: PRODUCT USED FOR UNKNOWN INDICATION
     Route: 048
     Dates: start: 20180706

REACTIONS (3)
  - Lung disorder [Fatal]
  - Palmar-plantar erythrodysaesthesia syndrome [Unknown]
  - Altered state of consciousness [Not Recovered/Not Resolved]

NARRATIVE: CASE EVENT DATE: 20180712
